FAERS Safety Report 25814798 (Version 1)
Quarter: 2025Q3

REPORT INFORMATION
  Report Type: Spontaneous
  Country: US (occurrence: US)
  Receive Date: 20250917
  Receipt Date: 20250917
  Transmission Date: 20251021
  Serious: Yes (Other)
  Sender: ABBVIE
  Company Number: US-ABBVIE-6459253

PATIENT
  Age: 70 Year
  Sex: Female

DRUGS (3)
  1. REFRESH RELIEVA PF XTRA [Suspect]
     Active Substance: CARBOXYMETHYLCELLULOSE SODIUM\GLYCERIN
     Indication: Dry eye
     Route: 047
  2. REFRESH OPTIVE MEGA-3 [Suspect]
     Active Substance: CARBOXYMETHYLCELLULOSE SODIUM\GLYCERIN\POLYSORBATE 80
     Indication: Product used for unknown indication
     Route: 047
     Dates: start: 2017
  3. REFRESH CLASSIC [Suspect]
     Active Substance: POLYVINYL ALCOHOL\POVIDONE
     Indication: Product used for unknown indication
     Route: 047
     Dates: start: 2015

REACTIONS (7)
  - Pulmonary fibrosis [Unknown]
  - Eye pruritus [Unknown]
  - Drug ineffective [Unknown]
  - Dry eye [Unknown]
  - Cataract [Unknown]
  - Hypertension [Unknown]
  - Blood cholesterol [Unknown]
